FAERS Safety Report 4620536-8 (Version None)
Quarter: 2005Q1

REPORT INFORMATION
  Report Type: 
  Country: None (occurrence: None)
  Receive Date: 20050328
  Receipt Date: 20050322
  Transmission Date: 20050727
  Serious: Yes (Other)
  Sender: FDA-Public Use
  Company Number: US-GLAXOSMITHKLINE-A0550860A

PATIENT
  Age: 3 Year
  Sex: Female

DRUGS (3)
  1. AUGMENTIN ES-600 [Suspect]
     Indication: EAR INFECTION
     Route: 048
     Dates: start: 20050228, end: 20050303
  2. ALBUTEROL [Concomitant]
  3. RYNATAN [Concomitant]

REACTIONS (3)
  - DERMATITIS BULLOUS [None]
  - OEDEMA PERIPHERAL [None]
  - RASH [None]
